FAERS Safety Report 6292477-4 (Version None)
Quarter: 2009Q3

REPORT INFORMATION
  Report Type: 
  Country: None (occurrence: None)
  Receive Date: 20090731
  Receipt Date: 20090720
  Transmission Date: 20100115
  Serious: Yes (Other)
  Sender: FDA-Public Use
  Company Number: US-PFIZER INC-2008096099

PATIENT
  Sex: Female
  Weight: 53.515 kg

DRUGS (8)
  1. LIPITOR [Suspect]
     Indication: BLOOD CHOLESTEROL INCREASED
     Dosage: 10 MG, DAILY
     Route: 048
     Dates: start: 19970627, end: 20020827
  2. SYNTHROID [Concomitant]
     Dosage: 0.075 MG, 1X/DAY
  3. PREMARIN [Concomitant]
  4. ATENOLOL [Concomitant]
  5. SERZONE [Concomitant]
     Dosage: 200 MG, 2X/DAY
     Route: 048
  6. MECLOZINE [Concomitant]
     Indication: DIZZINESS
     Dosage: 25 MG, 1-2 TWICE DAILY
     Route: 048
  7. ASTELIN [Concomitant]
     Dosage: 137 MG, 2 SPRAYS TWICE DAILY
     Route: 045
  8. ATROVENT [Concomitant]
     Indication: RHINITIS
     Dosage: TWO SPRAYS EVERY 4 HOUS
     Route: 045

REACTIONS (2)
  - GAIT DISTURBANCE [None]
  - MYALGIA [None]
